FAERS Safety Report 24165702 (Version 1)
Quarter: 2024Q3

REPORT INFORMATION
  Report Type: Report from Study
  Country: US (occurrence: US)
  Receive Date: 20240802
  Receipt Date: 20240802
  Transmission Date: 20241017
  Serious: No
  Sender: ACCORD
  Company Number: US-MYOVANT SCIENCES GMBH-2024MYSCI0300683

PATIENT
  Age: 45 Year
  Sex: Male

DRUGS (7)
  1. BICALUTAMIDE [Suspect]
     Active Substance: BICALUTAMIDE
     Indication: Product used for unknown indication
     Dosage: UNK
     Route: 065
  2. DOCETAXEL [Suspect]
     Active Substance: DOCETAXEL\DOCETAXEL ANHYDROUS
     Indication: Product used for unknown indication
     Dosage: UNK
     Route: 065
  3. RELUGOLIX [Suspect]
     Active Substance: RELUGOLIX
     Indication: Prostate cancer
     Dosage: 360 MILLIGRAM, ONE TIME DOSE
     Route: 048
  4. DAROLUTAMIDE [Concomitant]
     Active Substance: DAROLUTAMIDE
     Indication: Product used for unknown indication
     Dosage: UNK
     Route: 065
  5. RELUGOLIX [Suspect]
     Active Substance: RELUGOLIX
     Indication: Prostate cancer
     Dosage: 120 MILLIGRAM, QD
     Route: 048
  6. RELUGOLIX [Suspect]
     Active Substance: RELUGOLIX
     Indication: Prostate cancer
     Dosage: UNK
     Route: 065
  7. RELUGOLIX [Suspect]
     Active Substance: RELUGOLIX
     Indication: Prostate cancer
     Dosage: UNK
     Route: 065

REACTIONS (13)
  - Asthenia [Unknown]
  - Hot flush [Recovering/Resolving]
  - Arthralgia [Recovering/Resolving]
  - White blood cell count decreased [Not Recovered/Not Resolved]
  - Body temperature increased [Unknown]
  - Blood sodium decreased [Unknown]
  - Blood calcium decreased [Unknown]
  - Nocturia [Unknown]
  - Injection site rash [Unknown]
  - Blood alkaline phosphatase increased [Recovering/Resolving]
  - Palpitations [Recovered/Resolved]
  - Gingival discomfort [Recovering/Resolving]
  - Gingival blister [Recovering/Resolving]

NARRATIVE: CASE EVENT DATE: 20240401
